FAERS Safety Report 5320663-6 (Version None)
Quarter: 2007Q2

REPORT INFORMATION
  Report Type: 
  Country: None (occurrence: None)
  Receive Date: 20070509
  Receipt Date: 20070427
  Transmission Date: 20071010
  Serious: Yes (Other)
  Sender: FDA-Public Use
  Company Number: JP-PFIZER INC-2007031700

PATIENT
  Sex: Male
  Weight: 59 kg

DRUGS (10)
  1. ZYVOX [Suspect]
     Indication: WOUND INFECTION STAPHYLOCOCCAL
     Dosage: DAILY DOSE:1200MG
     Route: 042
     Dates: start: 20070329, end: 20070417
  2. GLYBURIDE [Concomitant]
     Indication: DIABETES MELLITUS
     Route: 048
     Dates: end: 20070417
  3. BASEN [Concomitant]
     Route: 048
     Dates: start: 20070403, end: 20070417
  4. AMLODIN [Concomitant]
     Route: 048
  5. FLUITRAN [Concomitant]
     Route: 048
  6. BLOPRESS [Concomitant]
     Route: 048
  7. FAMOTIDINE [Concomitant]
     Route: 048
  8. SENNOSIDE A [Concomitant]
     Route: 048
  9. CYANOCOBALAMIN [Concomitant]
     Route: 048
  10. NORVASC [Concomitant]
     Route: 048

REACTIONS (3)
  - HAEMOGLOBIN DECREASED [None]
  - HYPOGLYCAEMIA [None]
  - THROMBOCYTOPENIA [None]
